FAERS Safety Report 10478651 (Version 3)
Quarter: 2014Q4

REPORT INFORMATION
  Report Type: Report from Study
  Country: US (occurrence: US)
  Receive Date: 20140926
  Receipt Date: 20141016
  Transmission Date: 20150528
  Serious: No
  Sender: FDA-Public Use
  Company Number: US-AMGEN-USASP2014070490

PATIENT
  Age: 29 Year
  Sex: Female
  Weight: 79.37 kg

DRUGS (3)
  1. ENBREL [Suspect]
     Active Substance: ETANERCEPT
     Indication: PSORIASIS
     Dosage: 50 MG, QWK
     Route: 065
     Dates: start: 20050201
  2. LEVOTHYROXINE [Concomitant]
     Active Substance: LEVOTHYROXINE
     Indication: HYPOTHYROIDISM
     Dosage: 88 MG, DAILY
     Route: 048
     Dates: start: 20101101
  3. PRENATAL                           /00231801/ [Concomitant]
     Dosage: UNK UNK, DAILY
     Route: 048
     Dates: start: 20090701, end: 20131201

REACTIONS (1)
  - Psoriasis [Unknown]
